FAERS Safety Report 11026348 (Version 1)
Quarter: 2015Q2

REPORT INFORMATION
  Report Type: Spontaneous
  Country: US (occurrence: None)
  Receive Date: 20150413
  Receipt Date: 20150413
  Transmission Date: 20150821
  Serious: Yes (Other)
  Sender: FDA-Public Use
  Company Number: None

PATIENT
  Age: 43 Year
  Sex: Female
  Weight: 51.71 kg

DRUGS (6)
  1. FLONASE [Concomitant]
     Active Substance: FLUTICASONE PROPIONATE
  2. RETINA A (TOPICAL) [Concomitant]
  3. OMEGA 3^S [Concomitant]
  4. LEXAPRO [Suspect]
     Active Substance: ESCITALOPRAM OXALATE
     Indication: STRESS
     Dosage: 1 PILL
     Route: 048
     Dates: start: 20150409, end: 20150409
  5. VITAMIN B,D [Concomitant]
  6. LEXAPRO [Suspect]
     Active Substance: ESCITALOPRAM OXALATE
     Dosage: 1 PILL
     Route: 048
     Dates: start: 20150409, end: 20150409

REACTIONS (13)
  - Palpitations [None]
  - Fatigue [None]
  - Mydriasis [None]
  - Heart rate increased [None]
  - Nausea [None]
  - Hyperhidrosis [None]
  - Dry mouth [None]
  - Ocular hyperaemia [None]
  - Vision blurred [None]
  - Chest discomfort [None]
  - Feeling abnormal [None]
  - Agitation [None]
  - Cardiac flutter [None]

NARRATIVE: CASE EVENT DATE: 20150409
